FAERS Safety Report 9113664 (Version 2)
Quarter: 2013Q1

REPORT INFORMATION
  Report Type: Spontaneous
  Country: US (occurrence: US)
  Receive Date: 20130201
  Receipt Date: 20130318
  Transmission Date: 20140127
  Serious: No
  Sender: FDA-Public Use
  Company Number: US-PFIZER INC-2013039187

PATIENT
  Age: 62 Year
  Sex: Female
  Weight: 89.34 kg

DRUGS (7)
  1. CHANTIX [Suspect]
     Indication: SMOKING CESSATION THERAPY
     Dosage: UNK
     Route: 048
  2. CHANTIX [Suspect]
     Dosage: 1 MG, 2X/DAY
     Route: 048
     Dates: start: 20130127
  3. PROZAC [Concomitant]
     Indication: DEPRESSION
     Dosage: 80 MG, DAILY
  4. MELOXICAM [Concomitant]
     Dosage: 15 MG, DAILY
  5. PROPRANOLOL [Concomitant]
     Dosage: 80 MG, DAILY
  6. VITAMIN D3 [Concomitant]
     Dosage: 2000 IU, DAILY
  7. OMEPRAZOLE [Concomitant]
     Dosage: 20 MG, DAILY

REACTIONS (4)
  - Depression [Unknown]
  - Drug ineffective [Unknown]
  - Abnormal dreams [Unknown]
  - Blood cholesterol increased [Not Recovered/Not Resolved]
